FAERS Safety Report 15654308 (Version 2)
Quarter: 2018Q4

REPORT INFORMATION
  Report Type: Spontaneous
  Country: GB (occurrence: GB)
  Receive Date: 20181125
  Receipt Date: 20181127
  Transmission Date: 20190205
  Serious: Yes (Hospitalization)
  Sender: FDA-Public Use
  Company Number: GB-JNJFOC-20181120223

PATIENT
  Age: 14 Year
  Sex: Male
  Weight: 50 kg

DRUGS (1)
  1. CALPOL [Suspect]
     Active Substance: ACETAMINOPHEN
     Indication: HEADACHE
     Dosage: 3 FASTMELTS AT 1PM AROUND LUNCHTIME ONCE
     Route: 048
     Dates: start: 20181110, end: 20181110

REACTIONS (10)
  - Dysarthria [Recovered/Resolved]
  - Product use in unapproved indication [Unknown]
  - Confusional state [Recovered/Resolved]
  - Incoherent [Recovered/Resolved]
  - Amnesia [Recovered/Resolved]
  - Vomiting [Recovered/Resolved]
  - Heart rate irregular [Recovered/Resolved]
  - Delirium [Recovered/Resolved]
  - Hallucination [Recovered/Resolved]
  - Blood pressure decreased [Recovered/Resolved]

NARRATIVE: CASE EVENT DATE: 20181110
